FAERS Safety Report 6233636-6 (Version None)
Quarter: 2009Q2

REPORT INFORMATION
  Report Type: 
  Country: None (occurrence: None)
  Receive Date: 20090617
  Receipt Date: 20090608
  Transmission Date: 20091009
  Serious: Yes (Hospitalization)
  Sender: FDA-Public Use
  Company Number: BR-GILEAD-2009-0022483

PATIENT
  Sex: Male
  Weight: 56 kg

DRUGS (11)
  1. VIREAD [Suspect]
     Indication: HIV INFECTION
     Route: 048
     Dates: start: 20080613
  2. MARAVIROC [Suspect]
     Indication: HIV INFECTION
     Dates: start: 20080613
  3. DARUNAVIR [Concomitant]
     Indication: HIV INFECTION
     Dates: start: 20080613
  4. RITONAVIR [Concomitant]
     Indication: HIV INFECTION
     Dates: start: 20080613
  5. LAMIVUDINE [Concomitant]
     Indication: HIV INFECTION
     Dates: start: 20080613
  6. ENFUVIRTIDE [Concomitant]
     Indication: HIV INFECTION
     Dates: start: 20080613
  7. FLUCONAZOLE [Concomitant]
     Dates: start: 19930101
  8. ATENOLOL [Concomitant]
     Dates: start: 20080901
  9. HYDROCHLOROTHIAZIDE [Concomitant]
     Dates: start: 20081101
  10. LOSARTAN POTASSIUM [Concomitant]
     Dates: start: 20081101
  11. CLONAZEPAM [Concomitant]
     Dates: start: 20081101

REACTIONS (2)
  - BACTERAEMIA [None]
  - OSTEONECROSIS [None]
